FAERS Safety Report 7161338-0 (Version None)
Quarter: 2010Q4

REPORT INFORMATION
  Report Type: 
  Country: None (occurrence: None)
  Receive Date: 20101210
  Receipt Date: 20101210
  Transmission Date: 20110411
  Serious: Yes (Hospitalization)
  Sender: FDA-Public Use
  Company Number: None

PATIENT
  Age: 7 Year
  Sex: Female
  Weight: 26.7622 kg

DRUGS (1)
  1. LORATADINE [Suspect]
     Indication: TYPE III IMMUNE COMPLEX MEDIATED REACTION
     Dosage: 2 TEASPOONS ONCE DAILY PO
     Route: 048
     Dates: start: 20101208, end: 20101208

REACTIONS (1)
  - TYPE III IMMUNE COMPLEX MEDIATED REACTION [None]
